FAERS Safety Report 25399530 (Version 1)
Quarter: 2025Q2

REPORT INFORMATION
  Report Type: Spontaneous
  Country: FR (occurrence: FR)
  Receive Date: 20250605
  Receipt Date: 20250605
  Transmission Date: 20250716
  Serious: Yes (Other)
  Sender: TEVA
  Company Number: None

PATIENT
  Age: 68 Year
  Sex: Male

DRUGS (1)
  1. TRAMADOL [Suspect]
     Active Substance: TRAMADOL
     Indication: Product used for unknown indication
     Dosage: 75 MG/DAY (1 TABLET MORNING AND EVENING);?TRAMADOL BASE
     Route: 048
     Dates: start: 202209

REACTIONS (1)
  - Drug use disorder [Not Recovered/Not Resolved]
